FAERS Safety Report 6032117-2 (Version None)
Quarter: 2009Q1

REPORT INFORMATION
  Report Type: 
  Country: None (occurrence: None)
  Receive Date: 20090108
  Receipt Date: 20051222
  Transmission Date: 20090719
  Serious: Yes (Hospitalization)
  Sender: FDA-Public Use
  Company Number: IL-PFIZER INC-2008160406

PATIENT

DRUGS (4)
  1. CELECOXIB [Suspect]
     Indication: NEOPLASM PROPHYLAXIS
     Dosage: 400 MG, 1X/DAY
     Route: 048
     Dates: start: 20011106, end: 20041015
  2. NORMITEN [Concomitant]
     Dosage: UNK
  3. NORVASC [Concomitant]
     Dosage: UNK
  4. MICROPIRIN [Concomitant]
     Dosage: UNK

REACTIONS (1)
  - ARTHRODESIS [None]
